FAERS Safety Report 12708812 (Version 3)
Quarter: 2016Q3

REPORT INFORMATION
  Report Type: Spontaneous
  Country: JP (occurrence: JP)
  Receive Date: 20160901
  Receipt Date: 20160929
  Transmission Date: 20161109
  Serious: Yes (Disabling)
  Sender: FDA-Public Use
  Company Number: JP-ALLERGAN-1666121US

PATIENT
  Age: 75 Year
  Sex: Male

DRUGS (1)
  1. LUMIGAN [Suspect]
     Active Substance: BIMATOPROST
     Indication: OCULAR HYPERTENSION
     Dosage: 1 GTT, QD
     Route: 047
     Dates: start: 20160425, end: 20160725

REACTIONS (4)
  - Macular oedema [Not Recovered/Not Resolved]
  - Uveitis [Recovering/Resolving]
  - Visual acuity reduced [Unknown]
  - Photophobia [Unknown]

NARRATIVE: CASE EVENT DATE: 20160722
